FAERS Safety Report 19401045 (Version 1)
Quarter: 2021Q2

REPORT INFORMATION
  Report Type: Spontaneous
  Country: US (occurrence: US)
  Receive Date: 20210610
  Receipt Date: 20210610
  Transmission Date: 20210717
  Serious: No
  Sender: FDA-Public Use
  Company Number: US-SA-2021SA191914

PATIENT
  Age: 67 Year
  Sex: Male

DRUGS (1)
  1. DUPIXENT [Suspect]
     Active Substance: DUPILUMAB
     Indication: DERMATITIS ATOPIC
     Dosage: 2 DF, 1X
     Route: 058
     Dates: start: 20210520

REACTIONS (7)
  - Tremor [Unknown]
  - Chills [Unknown]
  - Dry skin [Unknown]
  - Sensitive skin [Unknown]
  - Muscle spasms [Unknown]
  - Dysarthria [Unknown]
  - Piloerection [Unknown]

NARRATIVE: CASE EVENT DATE: 20210521
